FAERS Safety Report 7167611-4 (Version None)
Quarter: 2010Q4

REPORT INFORMATION
  Report Type: 
  Country: None (occurrence: None)
  Receive Date: 20101216
  Receipt Date: 20100512
  Transmission Date: 20110411
  Serious: No
  Sender: FDA-Public Use
  Company Number: A0859338A

PATIENT
  Age: 54 Year
  Sex: Male

DRUGS (3)
  1. NICOTINE POLACRILEX [Suspect]
  2. COMMIT [Suspect]
  3. NICOTINE POLACRILEX [Suspect]

REACTIONS (2)
  - DRUG ADMINISTRATION ERROR [None]
  - HICCUPS [None]
